FAERS Safety Report 25278335 (Version 1)
Quarter: 2025Q2

REPORT INFORMATION
  Report Type: Spontaneous
  Country: CN (occurrence: CN)
  Receive Date: 20250507
  Receipt Date: 20250507
  Transmission Date: 20250716
  Serious: Yes (Other)
  Sender: ALEXION PHARMACEUTICALS
  Company Number: CN-ASTRAZENECA-202505CHN000453CN

PATIENT
  Age: 63 Year
  Weight: 75 kg

DRUGS (1)
  1. BRILINTA [Suspect]
     Active Substance: TICAGRELOR
     Indication: Angina unstable
     Dosage: 180 MILLIGRAM, QD

REACTIONS (1)
  - Chest discomfort [Recovering/Resolving]
